FAERS Safety Report 6994336-8 (Version None)
Quarter: 2010Q3

REPORT INFORMATION
  Report Type: 
  Country: None (occurrence: None)
  Receive Date: 20100917
  Receipt Date: 20100907
  Transmission Date: 20110219
  Serious: No
  Sender: FDA-Public Use
  Company Number: US-PFIZER INC-2010113245

PATIENT
  Sex: Female
  Weight: 99 kg

DRUGS (9)
  1. LYRICA [Suspect]
     Indication: FIBROMYALGIA
     Dosage: 75 MG, 2X/DAY
     Route: 048
     Dates: start: 20100819
  2. LABETALOL [Concomitant]
     Indication: HYPERTENSION
     Dosage: 200 MG, 2X/DAY
     Route: 048
  3. ACCUPRIL [Concomitant]
     Indication: HYPERTENSION
     Dosage: 40 MG, 2X/DAY
     Route: 048
  4. COZAAR [Concomitant]
     Indication: HYPERTENSION
     Dosage: 50 MG, DAILY
     Route: 048
  5. SITAGLIPTIN [Concomitant]
     Indication: DIABETES MELLITUS
     Dosage: 100 MG, DAILY
     Route: 048
  6. GLUCOTROL XL [Concomitant]
     Indication: DIABETES MELLITUS
     Dosage: 10 MG, DAILY
     Route: 048
  7. THEOPHYLLINE [Concomitant]
     Indication: ASTHMA
     Dosage: UNK, DAILY
     Route: 048
  8. MONTELUKAST SODIUM [Concomitant]
     Indication: ASTHMA
     Dosage: UNK, DAILY
  9. SIMVASTATIN/NIACIN [Concomitant]
     Indication: BLOOD CHOLESTEROL
     Dosage: 20/1000MG, DAILY
     Route: 048

REACTIONS (4)
  - ASTHENIA [None]
  - DRUG INEFFECTIVE [None]
  - HUNGER [None]
  - WEIGHT INCREASED [None]
